FAERS Safety Report 4411165-X (Version None)
Quarter: 2004Q2

REPORT INFORMATION
  Report Type: 
  Country: None (occurrence: None)
  Receive Date: 20040630
  Receipt Date: 20040513
  Transmission Date: 20050107
  Serious: No
  Sender: FDA-Public Use
  Company Number: 04P-163-0260832-00

PATIENT
  Sex: Female

DRUGS (2)
  1. HUMIRA [Suspect]
     Dosage: PER ORAL
     Route: 048
  2. PREDNISONE [Concomitant]

REACTIONS (2)
  - INCREASED APPETITE [None]
  - JOINT SWELLING [None]
